FAERS Safety Report 10004019 (Version 2)
Quarter: 2014Q2

REPORT INFORMATION
  Report Type: Report from Study
  Country: DE (occurrence: DE)
  Receive Date: 20140312
  Receipt Date: 20140522
  Transmission Date: 20141212
  Serious: Yes (Hospitalization)
  Sender: FDA-Public Use
  Company Number: PHHY2014DE029802

PATIENT
  Age: 33 Year
  Sex: Female

DRUGS (3)
  1. EXTAVIA [Suspect]
     Indication: MULTIPLE SCLEROSIS
     Dosage: 250 UG, QOD
     Route: 058
     Dates: start: 20121022
  2. CITALOPRAM [Concomitant]
     Dosage: 20 MG, QD
  3. IBUPROFEN [Concomitant]
     Dosage: 400 MG, TWICE A WEEK

REACTIONS (2)
  - Multiple sclerosis relapse [Recovering/Resolving]
  - Dysaesthesia [Recovering/Resolving]
